FAERS Safety Report 12957776 (Version 1)
Quarter: 2016Q4

REPORT INFORMATION
  Report Type: Spontaneous
  Country: GB (occurrence: GB)
  Receive Date: 20161119
  Receipt Date: 20161119
  Transmission Date: 20170207
  Serious: Yes (Hospitalization)
  Sender: FDA-Public Use
  Company Number: GB-ASTRAZENECA-2016SE50007

PATIENT
  Sex: Male

DRUGS (7)
  1. CITALOPRAM [Concomitant]
     Active Substance: CITALOPRAM HYDROBROMIDE
     Indication: DEPRESSION
  2. SYMBICORT [Suspect]
     Active Substance: BUDESONIDE\FORMOTEROL FUMARATE DIHYDRATE
     Indication: CHRONIC OBSTRUCTIVE PULMONARY DISEASE
     Dosage: 200/6 , UNKNOWN
     Route: 055
  3. BRICANYL [Suspect]
     Active Substance: TERBUTALINE SULFATE
     Dosage: 0.5/DOSE
     Route: 055
  4. AMLODIPIN [Concomitant]
     Active Substance: AMLODIPINE BESYLATE
     Indication: HYPERTENSION
     Dosage: 5
     Route: 048
     Dates: start: 20160322
  5. TERBUTALINE [Concomitant]
     Active Substance: TERBUTALINE
     Indication: CHRONIC OBSTRUCTIVE PULMONARY DISEASE
  6. SYMBICORT [Suspect]
     Active Substance: BUDESONIDE\FORMOTEROL FUMARATE DIHYDRATE
     Indication: CHRONIC OBSTRUCTIVE PULMONARY DISEASE
     Dosage: 200/6 , ONE PUFF TWO TIMES A DAY
     Route: 055
     Dates: start: 2009
  7. TERBUTALINE [Concomitant]
     Active Substance: TERBUTALINE
     Indication: ASTHMA

REACTIONS (13)
  - Muscle spasms [Unknown]
  - Blood potassium decreased [Unknown]
  - Abnormal behaviour [Unknown]
  - Mental disorder [Unknown]
  - Anger [Unknown]
  - Blood glucose increased [Unknown]
  - Depression [Unknown]
  - Nausea [Unknown]
  - Contusion [Unknown]
  - Chest pain [Unknown]
  - Mania [Unknown]
  - Rash pruritic [Unknown]
  - Bronchospasm [Unknown]
